FAERS Safety Report 22191076 (Version 1)
Quarter: 2023Q2

REPORT INFORMATION
  Report Type: Spontaneous
  Country: US (occurrence: None)
  Receive Date: 20230407
  Receipt Date: 20230407
  Transmission Date: 20230722
  Serious: Yes (Disabling)
  Sender: FDA-Public Use
  Company Number: None

PATIENT
  Age: 37 Year
  Sex: Female
  Weight: 50.85 kg

DRUGS (4)
  1. CYTOTEC [Suspect]
     Active Substance: MISOPROSTOL
     Dosage: OTHER QUANTITY : 4 TABLET(S);?OTHER FREQUENCY : ONCE;?
     Route: 067
     Dates: start: 20221221, end: 20221221
  2. LUTEIN [Concomitant]
     Active Substance: LUTEIN
  3. CALCIUM\VITAMIN D [Concomitant]
     Active Substance: CALCIUM\VITAMIN D
  4. GARLIC [Concomitant]
     Active Substance: GARLIC

REACTIONS (2)
  - Vision blurred [None]
  - Visual acuity reduced [None]

NARRATIVE: CASE EVENT DATE: 20221222
